FAERS Safety Report 12880564 (Version 1)
Quarter: 2016Q4

REPORT INFORMATION
  Report Type: Spontaneous
  Country: TW (occurrence: TW)
  Receive Date: 20161025
  Receipt Date: 20161025
  Transmission Date: 20170207
  Serious: Yes (Other)
  Sender: FDA-Public Use
  Company Number: TW-PFIZER INC-2016490042

PATIENT
  Age: 45 Year
  Sex: Male

DRUGS (1)
  1. XALATAN [Suspect]
     Active Substance: LATANOPROST
     Indication: PROPHYLAXIS
     Dosage: UNK

REACTIONS (3)
  - Eye pain [Unknown]
  - Product quality issue [Unknown]
  - Injury corneal [Unknown]
